FAERS Safety Report 9710888 (Version 2)
Quarter: 2013Q4

REPORT INFORMATION
  Report Type: Spontaneous
  Country: US (occurrence: US)
  Receive Date: 20131126
  Receipt Date: 20131126
  Transmission Date: 20140711
  Serious: No
  Sender: FDA-Public Use
  Company Number: US201209002682

PATIENT
  Age: 73 Year
  Sex: Female
  Weight: 85.26 kg

DRUGS (11)
  1. BYDUREON [Suspect]
     Indication: TYPE 2 DIABETES MELLITUS
     Route: 058
     Dates: start: 20120907
  2. ACTOS [Concomitant]
     Indication: TYPE 2 DIABETES MELLITUS
     Route: 048
  3. METFORMIN [Concomitant]
     Indication: TYPE 2 DIABETES MELLITUS
     Route: 048
  4. TUMS [Concomitant]
  5. TYLENOL [Concomitant]
  6. ASPIRIN [Concomitant]
  7. SYNTHROID [Concomitant]
  8. SIMVASTATIN [Concomitant]
  9. METFORMIN HCL TABS [Concomitant]
     Route: 048
  10. LISINOPRIL [Concomitant]
  11. PIOGLITAZONE HCL [Concomitant]

REACTIONS (9)
  - Blood glucose increased [Not Recovered/Not Resolved]
  - Hypophagia [Unknown]
  - Asthenia [Not Recovered/Not Resolved]
  - Fatigue [Not Recovered/Not Resolved]
  - Abdominal pain upper [Recovered/Resolved]
  - Nausea [Recovering/Resolving]
  - Diarrhoea [Recovered/Resolved]
  - Headache [Recovering/Resolving]
  - Underdose [Recovered/Resolved]
